FAERS Safety Report 4481535-2 (Version None)
Quarter: 2004Q4

REPORT INFORMATION
  Report Type: 
  Country: None (occurrence: None)
  Receive Date: 20041021
  Receipt Date: 20041011
  Transmission Date: 20050328
  Serious: Yes (Hospitalization)
  Sender: FDA-Public Use
  Company Number: STA-AE-04-MTX-478

PATIENT
  Age: 44 Year
  Sex: Female

DRUGS (13)
  1. RHEUMATREX [Suspect]
     Indication: RHEUMATOID ARTHRITIS
     Dosage: 2 MG 1X PER 1 WK, ORAL
     Route: 048
     Dates: start: 19990930, end: 20000120
  2. RHEUMATREX [Suspect]
     Indication: RHEUMATOID ARTHRITIS
     Dosage: 4 MG 1X PER 1 WK, ORAL
     Route: 048
     Dates: start: 20000413, end: 20000809
  3. RHEUMATREX [Suspect]
     Indication: RHEUMATOID ARTHRITIS
     Dosage: 6 MG 1X PER 1 WK, ORAL
     Route: 048
     Dates: start: 20000810, end: 20030116
  4. RHEUMATREX [Suspect]
     Indication: RHEUMATOID ARTHRITIS
     Dosage: 8 MG 1X PER 1 WK, ORAL
     Route: 048
     Dates: start: 20030117
  5. PREDNISOLONE [Suspect]
     Indication: RHEUMATOID ARTHRITIS
     Dosage: 6 MG 1X PER 1 DAY, ORAL
     Route: 048
     Dates: start: 20030804
  6. REMICADE [Suspect]
     Indication: RHEUMATOID ARTHRITIS
     Dosage: 3 MG/KG 1X PER 1 DAY, INTRAVENOUS
     Route: 042
     Dates: start: 20040115, end: 20040115
  7. REMICADE [Suspect]
     Indication: RHEUMATOID ARTHRITIS
     Dosage: 3 MG/KG 1X PER 1 DAY, INTRAVENOUS
     Route: 030
     Dates: start: 20040129, end: 20040129
  8. REMICADE [Suspect]
     Indication: RHEUMATOID ARTHRITIS
     Dosage: 3 MG/KG 1X PER 1 DAY, INTRAVENOUS
     Route: 042
     Dates: start: 20040225, end: 20040225
  9. REMICADE [Suspect]
     Indication: RHEUMATOID ARTHRITIS
     Dosage: 3 MG/KG 1X PER 1 DAY, INTRAVENOUS
     Route: 042
     Dates: start: 20040428, end: 20040428
  10. REMICADE [Suspect]
     Indication: RHEUMATOID ARTHRITIS
     Dosage: 3 MG/KG 1X PER 1 DAY, INTRAVENOUS
     Route: 042
     Dates: start: 20040623, end: 20040623
  11. REMICADE [Suspect]
     Indication: RHEUMATOID ARTHRITIS
     Dosage: 3 MG/KG 1X PER 1 DAY, INTRAVENOUS
     Route: 042
     Dates: start: 20040818, end: 20040818
  12. SHIOSOL (SODIUM AUROTHIOMALATE) [Concomitant]
  13. VOLTAREN [Concomitant]

REACTIONS (3)
  - CELLULITIS [None]
  - FEELING HOT [None]
  - PYREXIA [None]
